FAERS Safety Report 9058050 (Version 2)
Quarter: 2013Q1

REPORT INFORMATION
  Report Type: Spontaneous
  Country: US (occurrence: US)
  Receive Date: 20130211
  Receipt Date: 20130227
  Transmission Date: 20140127
  Serious: Yes (Hospitalization)
  Sender: FDA-Public Use
  Company Number: US-BIOGENIDEC-2013BI012220

PATIENT
  Age: 54 Year
  Sex: Female

DRUGS (1)
  1. AVONEX [Suspect]
     Indication: MULTIPLE SCLEROSIS
     Route: 030
     Dates: start: 20030513, end: 20110830

REACTIONS (5)
  - Drug ineffective [Unknown]
  - Ankle fracture [Recovered/Resolved]
  - Multiple sclerosis relapse [Recovered/Resolved]
  - Anaesthetic complication [Recovered/Resolved]
  - Post procedural complication [Not Recovered/Not Resolved]
